FAERS Safety Report 8180213-6 (Version None)
Quarter: 2012Q1

REPORT INFORMATION
  Report Type: 
  Country: None (occurrence: None)
  Receive Date: 20120302
  Receipt Date: 20120229
  Transmission Date: 20120608
  Serious: Yes (Hospitalization)
  Sender: FDA-Public Use
  Company Number: FR-AMGEN-KDC435606

PATIENT
  Age: 47 Year
  Sex: Female

DRUGS (10)
  1. MONAZOLE [Concomitant]
     Dosage: UNK
     Dates: start: 20100722
  2. SOLU-MEDROL [Concomitant]
     Dosage: UNK
     Dates: start: 20100722
  3. FLUOROURACIL [Suspect]
     Dosage: 940 MG, UNK
     Route: 042
     Dates: start: 20100722
  4. PANITUMUMAB [Suspect]
     Indication: BREAST CANCER
     Dosage: 690 MG, UNK
     Dates: start: 20100722
  5. CYCLOPHOSPHAMIDE [Suspect]
     Dosage: 940 MG, UNK
     Route: 042
     Dates: start: 20100722
  6. EMEND [Concomitant]
     Dosage: UNK
     Dates: start: 20100722
  7. DOXYCYCLINE [Concomitant]
     Dosage: UNK
     Dates: start: 20100722
  8. EPIRUBICIN [Suspect]
     Dosage: 190 MG, UNK
     Route: 042
     Dates: start: 20100722
  9. MEDROL [Concomitant]
     Dosage: UNK
     Dates: start: 20100722
  10. ZOFRAN [Concomitant]
     Dosage: UNK
     Dates: start: 20100722

REACTIONS (1)
  - FEBRILE NEUTROPENIA [None]
